FAERS Safety Report 9102440 (Version 2)
Quarter: 2013Q2

REPORT INFORMATION
  Report Type: Spontaneous
  Country: US (occurrence: US)
  Receive Date: 20130219
  Receipt Date: 20130424
  Transmission Date: 20140414
  Serious: Yes (Hospitalization, Disabling, Other)
  Sender: FDA-Public Use
  Company Number: US-CELGENEUS-163-21880-13021005

PATIENT
  Age: 59 Year
  Sex: Male
  Weight: 91.25 kg

DRUGS (23)
  1. REVLIMID [Suspect]
     Indication: PLASMA CELL MYELOMA
     Dosage: 25 MILLIGRAM
     Route: 048
     Dates: start: 200906
  2. REVLIMID [Suspect]
     Dosage: 15 MILLIGRAM
     Route: 048
     Dates: start: 201111
  3. REVLIMID [Suspect]
     Dosage: 10 MILLIGRAM
     Route: 048
     Dates: start: 201209
  4. LESCOL [Concomitant]
     Indication: PRODUCT USED FOR UNKNOWN INDICATION
     Dosage: 40 MILLIGRAM
     Route: 065
  5. ZYRTEC [Concomitant]
     Indication: PRODUCT USED FOR UNKNOWN INDICATION
     Route: 048
  6. DEXAMETHASONE [Concomitant]
     Indication: PRODUCT USED FOR UNKNOWN INDICATION
     Dosage: 4 MILLIGRAM
     Route: 048
  7. MULTIVITAMINS [Concomitant]
     Indication: PRODUCT USED FOR UNKNOWN INDICATION
     Route: 048
  8. FOLIC ACID [Concomitant]
     Indication: PRODUCT USED FOR UNKNOWN INDICATION
     Dosage: 20 MILLIGRAM
     Route: 065
  9. FOLIC ACID [Concomitant]
     Dosage: 1 MILLIGRAM
     Route: 065
  10. ZOMETA [Concomitant]
     Indication: PRODUCT USED FOR UNKNOWN INDICATION
     Dosage: 4 MILLIGRAM
     Route: 065
  11. ASA [Concomitant]
     Indication: PRODUCT USED FOR UNKNOWN INDICATION
     Dosage: 81 MILLIGRAM
     Route: 065
  12. PRIVIGEN [Concomitant]
     Indication: PRODUCT USED FOR UNKNOWN INDICATION
     Route: 065
  13. KYPROLIS [Concomitant]
     Indication: PLASMA CELL MYELOMA
     Route: 065
  14. AMINO ACID [Concomitant]
     Indication: PRODUCT USED FOR UNKNOWN INDICATION
     Dosage: 1 CAPSULE
     Route: 048
  15. DURAGESIC [Concomitant]
     Indication: PRODUCT USED FOR UNKNOWN INDICATION
     Dosage: 8.3333 MICROGRAM
     Route: 061
  16. HYDROCODONE BIT/ACETAMINOPHEN [Concomitant]
     Indication: PAIN
     Dosage: 5-500MG
     Route: 048
  17. LOMOTIL [Concomitant]
     Indication: PRODUCT USED FOR UNKNOWN INDICATION
     Dosage: 2.5-0.25MG
     Route: 048
  18. LORAZEPAM [Concomitant]
     Indication: NAUSEA
     Dosage: 6 MILLIGRAM
     Route: 048
  19. OMEPRAZOLE [Concomitant]
     Indication: PRODUCT USED FOR UNKNOWN INDICATION
     Dosage: 20 MILLIGRAM
     Route: 048
  20. PERIOGARD [Concomitant]
     Indication: PRODUCT USED FOR UNKNOWN INDICATION
  21. SUDAFED [Concomitant]
     Indication: PRODUCT USED FOR UNKNOWN INDICATION
     Route: 048
  22. TEMAZEPAM [Concomitant]
     Indication: SLEEP DISORDER
     Dosage: 30 MILLIGRAM
     Route: 048
  23. ZOFRAN [Concomitant]
     Indication: NAUSEA
     Dosage: 12 MILLIGRAM
     Route: 048

REACTIONS (4)
  - Neuropathy peripheral [Not Recovered/Not Resolved]
  - Spinal compression fracture [Recovering/Resolving]
  - Bone disorder [Unknown]
  - Drug ineffective [Recovered/Resolved]
